FAERS Safety Report 10235154 (Version 1)
Quarter: 2014Q2

REPORT INFORMATION
  Report Type: Spontaneous
  Country: GB (occurrence: GB)
  Receive Date: 20140613
  Receipt Date: 20140613
  Transmission Date: 20141212
  Serious: Yes (Disabling)
  Sender: FDA-Public Use
  Company Number: GB-JNJFOC-20140600975

PATIENT
  Age: 69 Year
  Sex: Male
  Weight: 116 kg

DRUGS (1)
  1. STELARA [Suspect]
     Indication: PSORIASIS
     Dosage: 90.0
     Route: 058

REACTIONS (2)
  - Cellulitis [Recovered/Resolved]
  - Eczema [Recovered/Resolved]
